FAERS Safety Report 22159109 (Version 1)
Quarter: 2023Q1

REPORT INFORMATION
  Report Type: Spontaneous
  Country: ES (occurrence: ES)
  Receive Date: 20230331
  Receipt Date: 20230331
  Transmission Date: 20230418
  Serious: Yes (Other)
  Sender: FDA-Public Use
  Company Number: None

PATIENT
  Age: 81 Year
  Sex: Female

DRUGS (2)
  1. ACETAMINOPHEN\TRAMADOL [Suspect]
     Active Substance: ACETAMINOPHEN\TRAMADOL
     Indication: Greater trochanteric pain syndrome
     Dosage: 1 DOSAGE FORM, EVERY 8 HRS
     Route: 048
     Dates: start: 20230226, end: 20230227
  2. CANDESARTAN CINFA [Concomitant]
     Indication: Hypertension
     Dosage: 32 MILLIGRAM, 1/DAY
     Route: 048
     Dates: start: 20210608

REACTIONS (1)
  - Cachexia [Recovered/Resolved]

NARRATIVE: CASE EVENT DATE: 20230227
